FAERS Safety Report 23312953 (Version 1)
Quarter: 2023Q4

REPORT INFORMATION
  Report Type: Spontaneous
  Country: ES (occurrence: ES)
  Receive Date: 20231219
  Receipt Date: 20231219
  Transmission Date: 20240110
  Serious: Yes (Hospitalization)
  Sender: FDA-Public Use
  Company Number: None

PATIENT
  Age: 75 Year
  Sex: Male

DRUGS (1)
  1. LIBTAYO [Suspect]
     Active Substance: CEMIPLIMAB-RWLC
     Indication: Lung adenocarcinoma
     Dosage: 350 MG, Q3W 350MG IV C/21 DIAS (RECIBE 3 DOSIS)
     Route: 042
     Dates: start: 20230612, end: 20230724

REACTIONS (3)
  - Ocular myasthenia [Recovered/Resolved]
  - Hepatocellular injury [Recovered/Resolved]
  - Autoimmune myositis [Recovered/Resolved]

NARRATIVE: CASE EVENT DATE: 20230818
